FAERS Safety Report 7442586-9 (Version None)
Quarter: 2011Q2

REPORT INFORMATION
  Report Type: 
  Country: None (occurrence: None)
  Receive Date: 20110428
  Receipt Date: 20110127
  Transmission Date: 20111010
  Serious: Yes (Other)
  Sender: FDA-Public Use
  Company Number: PHHY2011SK17426

PATIENT
  Age: 28 Year
  Sex: Male

DRUGS (5)
  1. TACROLIMUS [Suspect]
     Indication: RENAL TRANSPLANT
  2. MYCOPHENOLATE MOFETIL [Suspect]
     Indication: RENAL TRANSPLANT
  3. CORTICOSTEROIDS [Suspect]
     Indication: RENAL TRANSPLANT
  4. METHYLPREDNISOLONE [Suspect]
     Indication: RENAL TRANSPLANT
  5. VALGANCICLOVIR [Suspect]
     Indication: RENAL TRANSPLANT

REACTIONS (9)
  - APLASTIC ANAEMIA [None]
  - RENAL TUBULAR NECROSIS [None]
  - ERYTHEMA INFECTIOSUM [None]
  - RETICULOCYTOPENIA [None]
  - ALANINE AMINOTRANSFERASE INCREASED [None]
  - GRAFT DYSFUNCTION [None]
  - THROMBOSIS [None]
  - TRANSPLANT REJECTION [None]
  - ASPARTATE AMINOTRANSFERASE INCREASED [None]
